FAERS Safety Report 10460428 (Version 1)
Quarter: 2014Q3

REPORT INFORMATION
  Report Type: Spontaneous
  Country: US (occurrence: US)
  Receive Date: 20140917
  Receipt Date: 20140917
  Transmission Date: 20150326
  Serious: No
  Sender: FDA-Public Use
  Company Number: US-009507513-1409USA005166

PATIENT
  Sex: Female

DRUGS (1)
  1. NUVARING [Suspect]
     Active Substance: ETHINYL ESTRADIOL\ETONOGESTREL
     Dosage: DOSE/FREQUENCY: REPORTED AS PER RECOMMENDED IN THE PRESCRIBING INFORMATION
     Route: 067
     Dates: start: 201311

REACTIONS (2)
  - Device expulsion [Unknown]
  - No adverse event [Unknown]
